FAERS Safety Report 10307964 (Version 9)
Quarter: 2014Q4

REPORT INFORMATION
  Report Type: Spontaneous
  Country: US (occurrence: US)
  Receive Date: 20140716
  Receipt Date: 20141222
  Transmission Date: 20150528
  Serious: Yes (Hospitalization)
  Sender: FDA-Public Use
  Company Number: US-PFIZER INC-2014198118

PATIENT
  Age: 56 Year
  Sex: Male
  Weight: 81 kg

DRUGS (12)
  1. VIAGRA [Concomitant]
     Active Substance: SILDENAFIL CITRATE
     Dosage: UNK
  2. HERBAL NOS/MINERALS NOS [Concomitant]
     Dosage: UNK
  3. ANTABUSE [Concomitant]
     Active Substance: DISULFIRAM
     Dosage: UNK
  4. LYRICA [Suspect]
     Active Substance: PREGABALIN
     Indication: NEUROPATHY PERIPHERAL
     Dosage: 200 MG, UNK
  5. PENICILLIN NOS [Concomitant]
     Active Substance: PENICILLIN
     Dosage: UNK
  6. GABAPENTIN. [Concomitant]
     Active Substance: GABAPENTIN
     Indication: NEUROPATHY PERIPHERAL
     Dosage: UNK
  7. PERCOCET [Concomitant]
     Active Substance: ACETAMINOPHEN\OXYCODONE HYDROCHLORIDE
     Dosage: UNK
  8. ACETYLSALICYLIC ACID [Concomitant]
     Active Substance: ASPIRIN
     Dosage: UNK
  9. ALPHA LIPOIC ACID [Concomitant]
     Active Substance: .ALPHA.-LIPOIC ACID
     Dosage: 200 MG, UNK
  10. HYDROCODEINE PHOSPHATE [Concomitant]
     Indication: BACK PAIN
     Dosage: 5 MG, HOW MUCH HE TAKES DEPENDS ON THE PAIN
     Route: 048
  11. VITAMIN B12 [Concomitant]
     Active Substance: CYANOCOBALAMIN
     Dosage: 2000 ?G, UNK
  12. LYRICA [Suspect]
     Active Substance: PREGABALIN
     Dosage: UNK UNK, 2X/DAY

REACTIONS (9)
  - Peripheral swelling [Unknown]
  - Drug intolerance [Unknown]
  - Incorrect dose administered [Unknown]
  - Tobacco user [Unknown]
  - Rash generalised [Not Recovered/Not Resolved]
  - Pain in extremity [Unknown]
  - Furuncle [Unknown]
  - Blister [Unknown]
  - Gait disturbance [Unknown]
